FAERS Safety Report 11225245 (Version 4)
Quarter: 2016Q1

REPORT INFORMATION
  Report Type: Spontaneous
  Country: NL (occurrence: NL)
  Receive Date: 20150629
  Receipt Date: 20160325
  Transmission Date: 20160525
  Serious: Yes (Other)
  Sender: FDA-Public Use
  Company Number: NL-PFIZER INC-2015212448

PATIENT
  Age: 66 Year
  Sex: Female
  Weight: 95 kg

DRUGS (1)
  1. SOMAVERT [Suspect]
     Active Substance: PEGVISOMANT
     Indication: ACROMEGALY
     Dosage: 60 MG, WEEKLY
     Route: 058
     Dates: start: 20140811, end: 201601

REACTIONS (2)
  - Brain neoplasm [Not Recovered/Not Resolved]
  - Drug prescribing error [Unknown]
